FAERS Safety Report 5372505-0 (Version None)
Quarter: 2007Q2

REPORT INFORMATION
  Report Type: 
  Country: None (occurrence: None)
  Receive Date: 20070627
  Receipt Date: 20070622
  Transmission Date: 20071010
  Serious: Yes (Life-Threatening)
  Sender: FDA-Public Use
  Company Number: IT-BOEHRINGER INGELHEIM PHARMACEUTICALS, INC.-2007-IT-00241IT

PATIENT
  Sex: Female

DRUGS (2)
  1. MIRAPEXIN [Suspect]
     Indication: PARKINSON'S DISEASE
     Route: 048
     Dates: start: 20070615, end: 20070616
  2. MADOPAR [Concomitant]
     Route: 048

REACTIONS (2)
  - LETHARGY [None]
  - SENSORY LOSS [None]
